FAERS Safety Report 21130157 (Version 1)
Quarter: 2022Q3

REPORT INFORMATION
  Report Type: Spontaneous
  Country: TW (occurrence: TW)
  Receive Date: 20220726
  Receipt Date: 20220726
  Transmission Date: 20221027
  Serious: Yes (Hospitalization, Other)
  Sender: FDA-Public Use
  Company Number: TW-USP-004764

PATIENT
  Age: 83 Year
  Sex: Male

DRUGS (9)
  1. NITROGLYCERIN [Suspect]
     Active Substance: NITROGLYCERIN
     Indication: Pulmonary oedema
     Route: 060
  2. FUROSEMIDE [Suspect]
     Active Substance: FUROSEMIDE
     Indication: Pulmonary oedema
     Route: 042
  3. DEXTROSE [Concomitant]
     Active Substance: DEXTROSE
     Indication: Prophylaxis against dehydration
     Route: 042
  4. SODIUM CHLORIDE [Concomitant]
     Active Substance: SODIUM CHLORIDE
     Indication: Prophylaxis against dehydration
     Route: 042
  5. FENTANYL [Concomitant]
     Active Substance: FENTANYL
     Indication: Spinal anaesthesia
     Dosage: INJECTION OF 0.5%
     Route: 065
  6. MIDAZOLAM [Concomitant]
     Active Substance: MIDAZOLAM
     Indication: Cardio-respiratory distress
     Route: 042
  7. DIGOXIN [Concomitant]
     Active Substance: DIGOXIN
     Indication: Arrhythmia
     Route: 042
  8. BUPIVACAINE [Concomitant]
     Active Substance: BUPIVACAINE
     Indication: Spinal anaesthesia
     Dosage: INJECTION OF 0.5%
     Route: 065
  9. FENTANYL [Concomitant]
     Active Substance: FENTANYL
     Indication: Cardio-respiratory distress
     Route: 042

REACTIONS (3)
  - Hypoxia [Unknown]
  - Condition aggravated [Unknown]
  - Product use in unapproved indication [Unknown]
